FAERS Safety Report 21514454 (Version 2)
Quarter: 2022Q4

REPORT INFORMATION
  Report Type: Spontaneous
  Country: US (occurrence: None)
  Receive Date: 20221027
  Receipt Date: 20221207
  Transmission Date: 20230113
  Serious: Yes (Other)
  Sender: FDA-Public Use
  Company Number: 2022A351767

PATIENT
  Sex: Male
  Weight: 73.5 kg

DRUGS (1)
  1. BUDESONIDE\FORMOTEROL\GLYCOPYRRONIUM [Suspect]
     Active Substance: BUDESONIDE\FORMOTEROL\GLYCOPYRRONIUM
     Dosage: 2 PUFFS TWICE DAILY TO 1 PUFF TWICE DAILY, 160MCG/9MCG/4.8MCG
     Route: 055
     Dates: start: 202210

REACTIONS (7)
  - Respiratory disorder [Unknown]
  - Dyspepsia [Unknown]
  - Chest pain [Unknown]
  - Headache [Unknown]
  - Device use issue [Unknown]
  - Device delivery system issue [Unknown]
  - Product use issue [Unknown]
